FAERS Safety Report 21958683 (Version 2)
Quarter: 2023Q1

REPORT INFORMATION
  Report Type: Report from Study
  Country: IL (occurrence: None)
  Receive Date: 20230206
  Receipt Date: 20230213
  Transmission Date: 20230418
  Serious: Yes (Hospitalization)
  Sender: FDA-Public Use
  Company Number: IL-ROCHE-3276677

PATIENT
  Age: 59 Year
  Sex: Female
  Weight: 48 kg

DRUGS (5)
  1. PLACEBO [Suspect]
     Active Substance: UNSPECIFIED INGREDIENT
     Indication: Primary progressive multiple sclerosis
     Dosage: START DATE OF MOST RECENT DOSE OF STUDY DRUG PRIOR TO AE: 08/AUG/2022
     Route: 048
     Dates: start: 20210421
  2. OCRELIZUMAB [Suspect]
     Active Substance: OCRELIZUMAB
     Indication: Primary progressive multiple sclerosis
     Dosage: START DATE OF MOST RECENT DOSE OF STUDY DRUG PRIOR TO AE 23/MAR/2022
     Route: 042
     Dates: start: 20210421
  3. CHOLECALCIFEROL [Concomitant]
     Active Substance: CHOLECALCIFEROL
     Indication: Vitamin D deficiency
     Route: 048
     Dates: start: 2018
  4. AMPYRA [Concomitant]
     Active Substance: DALFAMPRIDINE
     Route: 048
     Dates: start: 20190218
  5. SENADE [Concomitant]
     Indication: Constipation
     Route: 048
     Dates: start: 1988

REACTIONS (1)
  - Disease progression [Not Recovered/Not Resolved]

NARRATIVE: CASE EVENT DATE: 20230123
